FAERS Safety Report 8001859 (Version 8)
Quarter: 2016Q1

REPORT INFORMATION
  Report Type: Report from Study
  Country: US (occurrence: US)
  Receive Date: 20110622
  Receipt Date: 20160330
  Transmission Date: 20160526
  Serious: Yes (Life-Threatening, Hospitalization, Disabling, Other)
  Sender: FDA-Public Use
  Company Number: US-ACTELION-A-US2011-50402

PATIENT
  Age: 61 Year
  Sex: Female

DRUGS (8)
  1. TRACLEER [Suspect]
     Active Substance: BOSENTAN
     Dosage: 62.5 MG,
     Route: 048
     Dates: start: 2010
  2. ASPIRIN. [Concomitant]
     Active Substance: ASPIRIN
     Dosage: 81 MG, OD
  3. PROAIR HFA [Concomitant]
     Active Substance: ALBUTEROL SULFATE
     Dosage: UNK
     Dates: start: 2008
  4. TRACLEER [Suspect]
     Active Substance: BOSENTAN
     Indication: PULMONARY ARTERIAL HYPERTENSION
     Dosage: 125 MG, BID
     Route: 048
     Dates: start: 20100401
  5. FISH OIL [Concomitant]
     Active Substance: FISH OIL
     Dosage: 100 MG, TID
  6. NITROGLYCERIN. [Concomitant]
     Active Substance: NITROGLYCERIN
  7. SPIRONOLACTONE. [Concomitant]
     Active Substance: SPIRONOLACTONE
     Dosage: 50 MG, BID
  8. TRAMADOL. [Concomitant]
     Active Substance: TRAMADOL
     Dosage: 150 MG, BID

REACTIONS (12)
  - Gastric haemorrhage [Recovering/Resolving]
  - Kidney infection [Recovered/Resolved]
  - Fluid retention [Recovering/Resolving]
  - Vomiting [Unknown]
  - Ulcer haemorrhage [Unknown]
  - Post procedural complication [Recovering/Resolving]
  - Gastric bypass [Recovered/Resolved]
  - Splenectomy [Unknown]
  - Impaired gastric emptying [Unknown]
  - Nausea [Unknown]
  - Gastritis [Recovering/Resolving]
  - Splenic haemorrhage [Unknown]

NARRATIVE: CASE EVENT DATE: 2010
